FAERS Safety Report 19283687 (Version 1)
Quarter: 2021Q2

REPORT INFORMATION
  Report Type: Spontaneous
  Country: CA (occurrence: CA)
  Receive Date: 20210521
  Receipt Date: 20210521
  Transmission Date: 20210717
  Serious: Yes (Hospitalization, Other)
  Sender: FDA-Public Use
  Company Number: CA-TEVA-2021-CA-1912581

PATIENT
  Age: 16 Year
  Sex: Male

DRUGS (1)
  1. AZITHROMYCIN ANHYDROUS. [Suspect]
     Active Substance: AZITHROMYCIN ANHYDROUS
     Indication: PRODUCT USED FOR UNKNOWN INDICATION
     Route: 065

REACTIONS (5)
  - Transaminases increased [Unknown]
  - Stevens-Johnson syndrome [Unknown]
  - Haemolytic anaemia [Unknown]
  - Toxic epidermal necrolysis [Unknown]
  - Acute kidney injury [Unknown]
